FAERS Safety Report 5865530-4 (Version None)
Quarter: 2008Q3

REPORT INFORMATION
  Report Type: 
  Country: None (occurrence: None)
  Receive Date: 20080829
  Receipt Date: 20080813
  Transmission Date: 20090109
  Serious: No
  Sender: FDA-Public Use
  Company Number: US-ABBOTT-08P-163-0468950-00

PATIENT
  Sex: Female
  Weight: 68.1 kg

DRUGS (5)
  1. SIMCOR [Suspect]
     Indication: BLOOD TRIGLYCERIDES INCREASED
     Dates: start: 20080801, end: 20080803
  2. ACETYLSALICYLIC ACID SRT [Concomitant]
     Indication: PROPHYLAXIS
     Route: 048
     Dates: start: 20080801, end: 20080803
  3. ACETYLSALICYLIC ACID SRT [Concomitant]
     Indication: FLUSHING
  4. LORAZEPAM [Concomitant]
     Indication: PANIC ATTACK
     Route: 048
  5. FLUOXETINE [Concomitant]
     Indication: PANIC ATTACK
     Route: 048

REACTIONS (3)
  - FLUSHING [None]
  - HEADACHE [None]
  - PARAESTHESIA [None]
